FAERS Safety Report 5675047-8 (Version None)
Quarter: 2008Q1

REPORT INFORMATION
  Report Type: 
  Country: None (occurrence: None)
  Receive Date: 20080320
  Receipt Date: 20080312
  Transmission Date: 20080703
  Serious: Yes (Death, Other)
  Sender: FDA-Public Use
  Company Number: US-TEVA-168810USA

PATIENT
  Age: 4 Year
  Sex: Female

DRUGS (11)
  1. MERCAPTOPURINE [Suspect]
     Indication: MALIGNANT HISTIOCYTOSIS
  2. ETOPOSIDE [Suspect]
     Indication: MALIGNANT HISTIOCYTOSIS
  3. VINCRISTINE [Suspect]
     Indication: MALIGNANT HISTIOCYTOSIS
  4. DOXORUBICIN HCL [Suspect]
     Indication: MALIGNANT HISTIOCYTOSIS
  5. PREDNISONE TAB [Suspect]
     Indication: MALIGNANT HISTIOCYTOSIS
  6. VINBLASTINE SULFATE [Suspect]
     Indication: MALIGNANT HISTIOCYTOSIS
  7. CLADRIBINE [Suspect]
     Indication: MALIGNANT HISTIOCYTOSIS
  8. CYTARABINE [Suspect]
     Indication: MALIGNANT HISTIOCYTOSIS
  9. METHOTREXATE [Suspect]
     Indication: MALIGNANT HISTIOCYTOSIS
  10. ASPARAGINASE [Suspect]
     Indication: MALIGNANT HISTIOCYTOSIS
  11. RITUXIMAB [Suspect]
     Indication: MALIGNANT HISTIOCYTOSIS

REACTIONS (2)
  - EPSTEIN-BARR VIRUS INFECTION [None]
  - LYMPHOPROLIFERATIVE DISORDER [None]
